FAERS Safety Report 9825202 (Version 3)
Quarter: 2015Q2

REPORT INFORMATION
  Report Type: Report from Study
  Country: MC (occurrence: MC)
  Receive Date: 20140117
  Receipt Date: 20150402
  Transmission Date: 20150821
  Serious: Yes (Hospitalization)
  Sender: FDA-Public Use
  Company Number: MC-ROCHE-1331982

PATIENT
  Age: 72 Year
  Sex: Female

DRUGS (17)
  1. CORTANCYL [Concomitant]
     Active Substance: PREDNISONE
     Route: 065
  2. PARACETAMOL [Concomitant]
     Active Substance: ACETAMINOPHEN
  3. RITUXIMAB [Suspect]
     Active Substance: RITUXIMAB
     Dosage: DAY AND DAY 15, DAY 15 INFUSION ON 13/APR/2011
     Route: 042
     Dates: start: 20110330
  4. RITUXIMAB [Suspect]
     Active Substance: RITUXIMAB
     Dosage: DAY 1 AND DAY 15, DAY 15 INFUSION ON 11/OCT/2012
     Route: 042
     Dates: start: 20120927
  5. RITUXIMAB [Suspect]
     Active Substance: RITUXIMAB
     Dosage: DAY 1 AND DAY 15, DAY 15 INFUSION ON:28/JUN/2013
     Route: 042
     Dates: start: 20130614
  6. RITUXIMAB [Suspect]
     Active Substance: RITUXIMAB
     Dosage: DAY 1 AND 15, DAY 15 INFUSION ON:03/JUL/2009
     Route: 042
     Dates: start: 20090619
  7. RITUXIMAB [Suspect]
     Active Substance: RITUXIMAB
     Dosage: DAY 1 AND 15, DAY 15 INFUSION ON:14/DEC/2011
     Route: 042
     Dates: start: 20111130
  8. LEFLUNOMIDE. [Concomitant]
     Active Substance: LEFLUNOMIDE
  9. RITUXIMAB [Suspect]
     Active Substance: RITUXIMAB
     Dosage: DAY 1 AND 15, AY 15 INFUSION ON 01/DEC/2008
     Route: 042
     Dates: start: 20081107
  10. CORTANCYL [Concomitant]
     Active Substance: PREDNISONE
     Route: 065
  11. CORTANCYL [Concomitant]
     Active Substance: PREDNISONE
     Route: 065
  12. CORTANCYL [Concomitant]
     Active Substance: PREDNISONE
     Route: 065
  13. RITUXIMAB [Suspect]
     Active Substance: RITUXIMAB
     Indication: RHEUMATOID ARTHRITIS
     Dosage: DAY1 AND DAY 15, DAY 15 INFUSION ON 23/APR/2008
     Route: 042
     Dates: start: 20080409
  14. RITUXIMAB [Suspect]
     Active Substance: RITUXIMAB
     Route: 042
     Dates: start: 20140505
  15. METHOTREXATE [Concomitant]
     Active Substance: METHOTREXATE
     Route: 065
     Dates: end: 20080604
  16. RITUXIMAB [Suspect]
     Active Substance: RITUXIMAB
     Dosage: DAY 1 AND 15, DAY 15 INFUSION ON:02/AUG/2010
     Route: 042
     Dates: start: 20100719
  17. CORTANCYL [Concomitant]
     Active Substance: PREDNISONE
     Route: 065

REACTIONS (11)
  - Infusion related reaction [Recovered/Resolved]
  - Influenza [Recovered/Resolved]
  - Erysipelas [Recovered/Resolved]
  - Diverticulum intestinal [Recovered/Resolved with Sequelae]
  - Urinary tract infection [Recovered/Resolved]
  - Psoriasis [Recovered/Resolved]
  - Pulmonary fibrosis [Recovered/Resolved]
  - Diarrhoea [Recovered/Resolved]
  - Psoriasis [Not Recovered/Not Resolved]
  - Micturition urgency [Recovered/Resolved]
  - Defaecation urgency [Recovered/Resolved]

NARRATIVE: CASE EVENT DATE: 20080516
